FAERS Safety Report 7118578-6 (Version None)
Quarter: 2010Q4

REPORT INFORMATION
  Report Type: 
  Country: None (occurrence: None)
  Receive Date: 20101026
  Receipt Date: 20100601
  Transmission Date: 20110411
  Serious: Yes (Death)
  Sender: FDA-Public Use
  Company Number: 2010S1000283

PATIENT
  Age: 51 Year

DRUGS (3)
  1. ROXICODONE [Suspect]
     Indication: PAIN
     Dosage: 60 MG;Q6H;PO
     Route: 048
     Dates: end: 20100515
  2. AMBIEN [Concomitant]
  3. FLEXERIL [Concomitant]

REACTIONS (1)
  - OVERDOSE [None]
